FAERS Safety Report 6978153-0 (Version None)
Quarter: 2010Q3

REPORT INFORMATION
  Report Type: 
  Country: None (occurrence: None)
  Receive Date: 20100913
  Receipt Date: 20100804
  Transmission Date: 20110219
  Serious: Yes (Hospitalization)
  Sender: FDA-Public Use
  Company Number: US-BAYER-201024202NA

PATIENT
  Age: 22 Year
  Sex: Female
  Weight: 82 kg

DRUGS (5)
  1. YAZ [Suspect]
     Indication: PRODUCT USED FOR UNKNOWN INDICATION
     Route: 048
     Dates: start: 20070101, end: 20100301
  2. ESTER-C [Concomitant]
     Dosage: AS NEEDED
     Route: 065
     Dates: start: 20090101
  3. EXCEDRIN (MIGRAINE) [Concomitant]
  4. PREVACID [Concomitant]
  5. MOTRIN [Concomitant]

REACTIONS (10)
  - ABDOMINAL DISTENSION [None]
  - ABDOMINAL PAIN [None]
  - BILIARY DYSKINESIA [None]
  - CHEST PAIN [None]
  - CHOLECYSTITIS CHRONIC [None]
  - GALLBLADDER CHOLESTEROLOSIS [None]
  - HEART RATE INCREASED [None]
  - NAUSEA [None]
  - PROCEDURAL NAUSEA [None]
  - VOMITING [None]
